FAERS Safety Report 5119177-8 (Version None)
Quarter: 2006Q3

REPORT INFORMATION
  Report Type: 
  Country: None (occurrence: None)
  Receive Date: 20060929
  Receipt Date: 20060929
  Transmission Date: 20061208
  Serious: Yes (Life-Threatening, Hospitalization)
  Sender: FDA-Public Use
  Company Number: None

PATIENT
  Age: 46 Year
  Sex: Male
  Weight: 64.184 kg

DRUGS (13)
  1. FENTANYL TRANSDERMAL SYSTEM [Suspect]
     Indication: AMPUTATION
     Dosage: 100MCG PATCH  EVERY 2 DAYS  TRANSDERMAL
     Route: 062
     Dates: start: 20050401, end: 20060926
  2. FENTANYL TRANSDERMAL SYSTEM [Suspect]
     Indication: PAIN
     Dosage: 100MCG PATCH  EVERY 2 DAYS  TRANSDERMAL
     Route: 062
     Dates: start: 20050401, end: 20060926
  3. LIPITOR [Concomitant]
  4. DILTIAZEM HCL [Concomitant]
  5. FOLIC ACID [Concomitant]
  6. GLYBURIDE [Concomitant]
  7. GEMFIBROZIL [Concomitant]
  8. NPH INSULIN [Concomitant]
  9. ISOSORBIDE MONONITRATE [Concomitant]
  10. OMEPRAZOLE [Concomitant]
  11. OXYCODONE HCL [Concomitant]
  12. ZOLOFT [Concomitant]
  13. TERBINAFINE [Concomitant]

REACTIONS (5)
  - KIDNEY INFECTION [None]
  - LOSS OF CONSCIOUSNESS [None]
  - OVERDOSE [None]
  - PHARMACEUTICAL PRODUCT COMPLAINT [None]
  - PYREXIA [None]
